FAERS Safety Report 14686465 (Version 1)
Quarter: 2018Q1

REPORT INFORMATION
  Report Type: Spontaneous
  Country: US (occurrence: US)
  Receive Date: 20180327
  Receipt Date: 20180327
  Transmission Date: 20180509
  Serious: No
  Sender: FDA-Public Use
  Company Number: US-ALKERMES INC.-ALK-2018-001076

PATIENT
  Age: 41 Year
  Sex: Male
  Weight: 99.77 kg

DRUGS (2)
  1. METHADONE [Concomitant]
     Active Substance: METHADONE HYDROCHLORIDE
     Indication: PRODUCT USED FOR UNKNOWN INDICATION
     Dosage: UNK
     Dates: start: 201801
  2. VIVITROL [Suspect]
     Active Substance: NALTREXONE
     Indication: DRUG DEPENDENCE
     Dosage: 380 MG, QMO
     Route: 030
     Dates: start: 20180112

REACTIONS (13)
  - Urine abnormality [Unknown]
  - Anxiety [Unknown]
  - Dehydration [Unknown]
  - Memory impairment [Unknown]
  - Syncope [Unknown]
  - Loss of personal independence in daily activities [Unknown]
  - Loss of employment [Unknown]
  - Suicidal ideation [Unknown]
  - Tremor [Unknown]
  - Mydriasis [Unknown]
  - Confusional state [Unknown]
  - Decreased appetite [Unknown]
  - Drug dependence [Unknown]

NARRATIVE: CASE EVENT DATE: 20180126
